FAERS Safety Report 6272351-X (Version None)
Quarter: 2009Q3

REPORT INFORMATION
  Report Type: 
  Country: None (occurrence: None)
  Receive Date: 20090717
  Receipt Date: 20090707
  Transmission Date: 20100115
  Serious: Yes (Hospitalization, Other)
  Sender: FDA-Public Use
  Company Number: US-JNJFOC-20090304115

PATIENT
  Sex: Female
  Weight: 107.96 kg

DRUGS (10)
  1. REMICADE [Suspect]
     Route: 042
  2. REMICADE [Suspect]
     Route: 042
  3. REMICADE [Suspect]
     Route: 042
  4. REMICADE [Suspect]
     Indication: PSORIASIS
     Route: 042
  5. METOPROLOL TARTRATE [Concomitant]
     Indication: HYPERTENSION
  6. DYAZIDE [Concomitant]
     Indication: OEDEMA
  7. SPIRONOLACTONE [Concomitant]
     Indication: OEDEMA
  8. LACTULOSE [Concomitant]
     Indication: ENCEPHALOPATHY
  9. PERCOCET [Concomitant]
     Indication: ARTHRALGIA
  10. NADOLOL [Concomitant]

REACTIONS (4)
  - EAR INFECTION [None]
  - LIVER DISORDER [None]
  - POLYARTHRITIS [None]
  - RESPIRATORY TRACT INFECTION [None]
